FAERS Safety Report 13320719 (Version 1)
Quarter: 2017Q1

REPORT INFORMATION
  Report Type: Spontaneous
  Country: US (occurrence: US)
  Receive Date: 20170310
  Receipt Date: 20170310
  Transmission Date: 20170428
  Serious: No
  Sender: FDA-Public Use
  Company Number: US-GLAXOSMITHKLINE-US2017030482

PATIENT
  Age: 61 Year
  Sex: Male

DRUGS (1)
  1. VOLTAREN [Suspect]
     Active Substance: DICLOFENAC SODIUM
     Indication: CONTUSION
     Dosage: UNK
     Dates: start: 20170228, end: 20170302

REACTIONS (3)
  - Prescription drug used without a prescription [Unknown]
  - Drug ineffective for unapproved indication [Unknown]
  - Product use issue [Unknown]
